FAERS Safety Report 10989276 (Version 1)
Quarter: 2015Q2

REPORT INFORMATION
  Report Type: Spontaneous
  Country: US (occurrence: US)
  Receive Date: 20150406
  Receipt Date: 20150406
  Transmission Date: 20150821
  Serious: No
  Sender: FDA-Public Use
  Company Number: US-ASTRAZENECA-2015SE29167

PATIENT
  Age: 942 Month
  Sex: Male

DRUGS (1)
  1. SYMBICORT [Suspect]
     Active Substance: BUDESONIDE\FORMOTEROL FUMARATE DIHYDRATE
     Dosage: 160 4.5 2 PUFFS, TWO TIMES A DAY
     Route: 055
     Dates: start: 2012

REACTIONS (2)
  - Dyspnoea [Unknown]
  - Underdose [Unknown]

NARRATIVE: CASE EVENT DATE: 201503
